FAERS Safety Report 9752019 (Version 1)
Quarter: 2013Q4

REPORT INFORMATION
  Report Type: Spontaneous
  Country: US (occurrence: None)
  Receive Date: 20131211
  Receipt Date: 20131211
  Transmission Date: 20140711
  Serious: Yes (Other)
  Sender: FDA-Public Use
  Company Number: None

PATIENT
  Age: 53 Year
  Sex: Female

DRUGS (5)
  1. TETRAHYDROZOLINE HCL, ZINC SULFATE [Suspect]
     Indication: EYE IRRITATION
     Dosage: 1-2 DROPS, UP TO 4X A DAY, OPHTHALMIC
     Dates: start: 20131126, end: 20131126
  2. DG HEALTH, STERILE REDNESS RELIEF EYE DROPS [Concomitant]
  3. METHOTREXATE [Concomitant]
  4. PREDNISONE [Concomitant]
  5. DETROL [Concomitant]

REACTIONS (1)
  - Eye pain [None]
